FAERS Safety Report 21167980 (Version 4)
Quarter: 2023Q1

REPORT INFORMATION
  Report Type: Spontaneous
  Country: FR (occurrence: FR)
  Receive Date: 20220803
  Receipt Date: 20230307
  Transmission Date: 20230418
  Serious: Yes (Other)
  Sender: FDA-Public Use
  Company Number: FR-ELI_LILLY_AND_COMPANY-FR202207010761

PATIENT
  Sex: Female

DRUGS (1)
  1. TERIPARATIDE [Suspect]
     Active Substance: TERIPARATIDE
     Indication: Osteoporosis
     Dosage: UNK UNK, UNKNOWN
     Route: 065
     Dates: start: 20220628

REACTIONS (34)
  - Spinal fracture [Unknown]
  - Weight increased [Recovering/Resolving]
  - Diarrhoea [Unknown]
  - Constipation [Unknown]
  - Abdominal pain upper [Not Recovered/Not Resolved]
  - Depression [Unknown]
  - Amnesia [Unknown]
  - Sciatica [Unknown]
  - Abdominal distension [Not Recovered/Not Resolved]
  - Dizziness [Not Recovered/Not Resolved]
  - Fatigue [Not Recovered/Not Resolved]
  - Thyroid mass [Unknown]
  - Hernia [Unknown]
  - Fluid intake reduced [Unknown]
  - Breast swelling [Unknown]
  - Pain [Not Recovered/Not Resolved]
  - Back pain [Unknown]
  - Somnolence [Unknown]
  - Tachycardia [Unknown]
  - Peripheral swelling [Unknown]
  - Gait disturbance [Unknown]
  - Injection site hypersensitivity [Not Recovered/Not Resolved]
  - Application site acne [Unknown]
  - Weight decreased [Unknown]
  - Decreased appetite [Unknown]
  - Arthralgia [Unknown]
  - Multiple fractures [Unknown]
  - Angina pectoris [Unknown]
  - Pruritus [Unknown]
  - Fall [Unknown]
  - Nausea [Not Recovered/Not Resolved]
  - Muscle spasms [Unknown]
  - Product storage error [Unknown]
  - Product storage error [Unknown]
